FAERS Safety Report 13849082 (Version 1)
Quarter: 2017Q3

REPORT INFORMATION
  Report Type: Spontaneous
  Country: US (occurrence: US)
  Receive Date: 20170809
  Receipt Date: 20170809
  Transmission Date: 20171127
  Serious: No
  Sender: FDA-Public Use
  Company Number: US-AUROBINDO-AUR-APU-2016-12193

PATIENT
  Sex: Male

DRUGS (1)
  1. LEVOFLOXACIN TABLETS 500MG [Suspect]
     Active Substance: LEVOFLOXACIN
     Indication: BRONCHITIS
     Dosage: 500 MG, UNK
     Route: 065
     Dates: start: 20160923, end: 20160926

REACTIONS (2)
  - Tendonitis [Recovering/Resolving]
  - Gait disturbance [Recovering/Resolving]
